FAERS Safety Report 6619150-4 (Version None)
Quarter: 2010Q1

REPORT INFORMATION
  Report Type: 
  Country: None (occurrence: None)
  Receive Date: 20100305
  Receipt Date: 20100305
  Transmission Date: 20100710
  Serious: Yes (Hospitalization)
  Sender: FDA-Public Use
  Company Number: None

PATIENT
  Age: 60 Year
  Sex: Female
  Weight: 62 kg

DRUGS (1)
  1. ZYVOX [Suspect]
     Dosage: 600 MG BID PO
     Route: 048

REACTIONS (2)
  - HAEMATOCRIT DECREASED [None]
  - PANCYTOPENIA [None]
